FAERS Safety Report 14467511 (Version 2)
Quarter: 2018Q1

REPORT INFORMATION
  Report Type: Spontaneous
  Country: PL (occurrence: PL)
  Receive Date: 20180131
  Receipt Date: 20180317
  Transmission Date: 20180509
  Serious: Yes (Other)
  Sender: FDA-Public Use
  Company Number: PL-AUROBINDO-AUR-APL-2018-003500

PATIENT
  Sex: Male

DRUGS (3)
  1. HARVONI [Suspect]
     Active Substance: LEDIPASVIR\SOFOSBUVIR
     Indication: HEPATITIS C
  2. RIBAVIRIN FILM-COATED TABLET [Suspect]
     Active Substance: RIBAVIRIN
     Indication: HEPATITIS C
     Dosage: ()
     Route: 065
  3. SOVALDI [Suspect]
     Active Substance: SOFOSBUVIR
     Indication: HEPATITIS C
     Dosage: ()
     Route: 065

REACTIONS (1)
  - Drug ineffective [Unknown]
